FAERS Safety Report 5318485-5 (Version None)
Quarter: 2007Q2

REPORT INFORMATION
  Report Type: 
  Country: None (occurrence: None)
  Receive Date: 20070501
  Receipt Date: 20070419
  Transmission Date: 20071010
  Serious: Yes (Other)
  Sender: FDA-Public Use
  Company Number: 2007AL001590

PATIENT
  Age: 52 Year
  Sex: Female

DRUGS (9)
  1. MIRTAZAPINE [Suspect]
     Indication: DEPRESSION
     Dosage: 15 MG; QD; PO
     Route: 048
     Dates: start: 20070307, end: 20070328
  2. VITAMIN CAP [Concomitant]
  3. THIAMINE [Concomitant]
  4. TEMAZEPAM [Concomitant]
  5. DIAZEPAM [Concomitant]
  6. PARACETAMOL [Concomitant]
  7. CITALOPRAM HYDROBROMIDE [Concomitant]
  8. CITALOPRAM HYDROBROMIDE [Concomitant]
  9. CITALOPRAM HYDROBROMIDE [Concomitant]

REACTIONS (2)
  - PSYCHOMOTOR HYPERACTIVITY [None]
  - RASH [None]
